FAERS Safety Report 8541390-8 (Version None)
Quarter: 2012Q3

REPORT INFORMATION
  Report Type: 
  Country: None (occurrence: None)
  Receive Date: 20120726
  Receipt Date: 20110916
  Transmission Date: 20120928
  Serious: No
  Sender: FDA-Public Use
  Company Number: US-ASTRAZENECA-2011SE56223

PATIENT
  Age: 33 Year
  Sex: Male
  Weight: 77.1 kg

DRUGS (1)
  1. SEROQUEL [Suspect]
     Indication: SLEEP DISORDER
     Route: 048
     Dates: start: 20110401

REACTIONS (4)
  - MENTAL IMPAIRMENT [None]
  - LETHARGY [None]
  - DRUG DOSE OMISSION [None]
  - SLUGGISHNESS [None]
